FAERS Safety Report 5125805-3 (Version None)
Quarter: 2006Q4

REPORT INFORMATION
  Report Type: 
  Country: None (occurrence: None)
  Receive Date: 20061010
  Receipt Date: 20061010
  Transmission Date: 20070319
  Serious: Yes (Other)
  Sender: FDA-Public Use
  Company Number: None

PATIENT
  Age: 68 Year
  Sex: Male

DRUGS (8)
  1. REVLIMID [Suspect]
     Indication: MULTIPLE MYELOMA
     Dosage: 25MG QD PO
     Route: 048
     Dates: start: 20060920, end: 20061009
  2. ENDOCET [Concomitant]
  3. DEXAMETHASONE TAB [Concomitant]
  4. AREDIA [Concomitant]
  5. METOPROLOL TARTRATE [Concomitant]
  6. TERAZOSIN HCL [Concomitant]
  7. FAMOTIDINE [Concomitant]
  8. COLCHICINE [Concomitant]

REACTIONS (1)
  - VISION BLURRED [None]
